FAERS Safety Report 16667236 (Version 1)
Quarter: 2019Q3

REPORT INFORMATION
  Report Type: Report from Study
  Country: BR (occurrence: BR)
  Receive Date: 20190805
  Receipt Date: 20190805
  Transmission Date: 20191004
  Serious: Yes (Other)
  Sender: FDA-Public Use
  Company Number: BR-TEVA-2019-BR-1087411

PATIENT
  Age: 61 Year
  Sex: Female

DRUGS (6)
  1. TREZOR 10MG [Concomitant]
  2. DIOVAN [Concomitant]
     Active Substance: VALSARTAN
  3. BUP 150 MG [Concomitant]
  4. TRAYENTA 5 MG [Concomitant]
  5. NATRILIX SR [Concomitant]
     Active Substance: INDAPAMIDE
  6. COPAXONE [Suspect]
     Active Substance: GLATIRAMER ACETATE
     Indication: RELAPSING-REMITTING MULTIPLE SCLEROSIS
     Dosage: 20 MILLIGRAM/MILLILITERS DAILY;
     Route: 065
     Dates: start: 20170515

REACTIONS (3)
  - Spinal shock [Recovered/Resolved]
  - Tachycardia [Recovered/Resolved]
  - Product use issue [Unknown]

NARRATIVE: CASE EVENT DATE: 20190727
